FAERS Safety Report 6768231-3 (Version None)
Quarter: 2010Q2

REPORT INFORMATION
  Report Type: 
  Country: None (occurrence: None)
  Receive Date: 20100614
  Receipt Date: 20100420
  Transmission Date: 20101027
  Serious: Yes (Hospitalization, Other)
  Sender: FDA-Public Use
  Company Number: US-BAYER-201011737NA

PATIENT
  Age: 24 Year
  Sex: Female
  Weight: 50 kg

DRUGS (19)
  1. YAZ [Suspect]
     Indication: DRUG USE FOR UNKNOWN INDICATION
     Route: 048
     Dates: start: 20080801, end: 20090817
  2. YAZ [Suspect]
     Route: 048
     Dates: start: 20080801, end: 20090817
  3. YAZ [Suspect]
     Route: 048
     Dates: start: 20080801, end: 20090817
  4. YAZ [Suspect]
     Route: 048
     Dates: start: 20080801, end: 20090817
  5. TREIMET [Concomitant]
     Dates: start: 20090806
  6. AMOXICILLIN [Concomitant]
     Dates: start: 20080301
  7. CIPROFLOXACIN [Concomitant]
     Dates: start: 20080701
  8. PHENAZOPYRIDINE HCL TAB [Concomitant]
     Indication: URINARY TRACT DISORDER
     Dates: start: 20080101
  9. PROCHLORPERAZINE [Concomitant]
     Indication: PSYCHOTIC DISORDER
     Dates: start: 20081101
  10. RELPAX [Concomitant]
     Indication: MIGRAINE
     Dates: start: 20090301, end: 20090401
  11. TOPAMAX [Concomitant]
     Indication: MIGRAINE
     Dates: start: 20090301
  12. HYDROCODONE BITARTRATE AND ACETAMINOPHEN [Concomitant]
     Dates: start: 20081101
  13. OMNICEF [Concomitant]
     Dates: start: 20081101
  14. PROPRANOLOL [Concomitant]
     Dates: start: 20090801
  15. DOCUSATE SODIUM [Concomitant]
     Dates: start: 20090601
  16. CLARINEX [Concomitant]
     Dates: start: 20090801
  17. CEPHALEXIN [Concomitant]
     Dates: start: 20080401
  18. HYDROCODONE BITARTRATE [Concomitant]
     Dates: start: 20090601
  19. MIRENA [Concomitant]
     Route: 015
     Dates: start: 20080824

REACTIONS (2)
  - ABDOMINAL PAIN UPPER [None]
  - CHOLECYSTITIS CHRONIC [None]
